FAERS Safety Report 19700334 (Version 1)
Quarter: 2021Q3

REPORT INFORMATION
  Report Type: Spontaneous
  Country: AU (occurrence: AU)
  Receive Date: 20210813
  Receipt Date: 20210813
  Transmission Date: 20211014
  Serious: Yes (Other)
  Sender: FDA-Public Use
  Company Number: AU-ANIPHARMA-2021-AU-000253

PATIENT
  Age: 70 Year
  Sex: Female

DRUGS (12)
  1. XGEVA [Suspect]
     Active Substance: DENOSUMAB
     Route: 065
     Dates: start: 202004
  2. FASLODEX [Suspect]
     Active Substance: FULVESTRANT
     Route: 030
  3. ASPIRIN. [Concomitant]
     Active Substance: ASPIRIN
     Route: 065
  4. VITAMIN D [Concomitant]
     Active Substance: VITAMIN D NOS
     Route: 065
  5. ANASTROZOLE. [Suspect]
     Active Substance: ANASTROZOLE
     Indication: PRODUCT USED FOR UNKNOWN INDICATION
     Route: 048
  6. CALCIUM [Concomitant]
     Active Substance: CALCIUM
     Route: 065
  7. RIBOCICLIB. [Suspect]
     Active Substance: RIBOCICLIB
     Route: 048
     Dates: start: 202007
  8. CAPECITABINE. [Suspect]
     Active Substance: CAPECITABINE
     Route: 065
     Dates: start: 202011
  9. PALBOCICLIB [Suspect]
     Active Substance: PALBOCICLIB
     Route: 065
     Dates: start: 202004, end: 202006
  10. LETROZOLE. [Suspect]
     Active Substance: LETROZOLE
     Route: 065
     Dates: start: 202004
  11. ABRAXANE [Suspect]
     Active Substance: PACLITAXEL
     Route: 065
  12. VINORELBINE [Suspect]
     Active Substance: VINORELBINE TARTRATE
     Route: 065
     Dates: start: 202011

REACTIONS (12)
  - Metastases to bone [Unknown]
  - Joint stiffness [Unknown]
  - Malignant neoplasm progression [Unknown]
  - Pleural effusion [Unknown]
  - Mouth ulceration [Recovering/Resolving]
  - Gene mutation [Unknown]
  - Rash [Unknown]
  - Pulmonary embolism [Unknown]
  - Nail avulsion [Unknown]
  - Tumour marker increased [Unknown]
  - Breast cancer metastatic [Unknown]
  - Burning sensation [Recovering/Resolving]

NARRATIVE: CASE EVENT DATE: 202004
